FAERS Safety Report 15044167 (Version 1)
Quarter: 2018Q2

REPORT INFORMATION
  Report Type: Report from Study
  Country: JP (occurrence: JP)
  Receive Date: 20180621
  Receipt Date: 20180621
  Transmission Date: 20180711
  Serious: Yes (Hospitalization)
  Sender: FDA-Public Use
  Company Number: PHJP2017JP011278

PATIENT
  Age: 73 Year
  Sex: Male

DRUGS (5)
  1. TAKEPRON [Concomitant]
     Active Substance: LANSOPRAZOLE
     Indication: NON-SMALL CELL LUNG CANCER STAGE IV
     Dosage: 15 MG, UNK
     Route: 048
  2. ZYKADIA [Suspect]
     Active Substance: CERITINIB
     Indication: NON-SMALL CELL LUNG CANCER STAGE IV
     Dosage: 750 MG, QD
     Route: 048
     Dates: start: 20160816, end: 20160826
  3. MAGNESIUM OXIDE. [Concomitant]
     Active Substance: MAGNESIUM OXIDE
     Indication: NON-SMALL CELL LUNG CANCER STAGE IV
     Dosage: 990 MG, UNK
     Route: 048
  4. BIOFERMIN [Concomitant]
     Active Substance: BACILLUS SUBTILIS\LACTOBACILLUS ACIDOPHILUS\STREPTOCOCCUS FAECAIS
     Indication: NON-SMALL CELL LUNG CANCER STAGE IV
     Dosage: 3 G, UNK
     Route: 048
  5. CALBLOCK [Concomitant]
     Active Substance: AZELNIDIPINE
     Indication: NON-SMALL CELL LUNG CANCER STAGE IV
     Dosage: 16 MG, UNK
     Route: 048

REACTIONS (2)
  - C-reactive protein increased [Recovered/Resolved]
  - Hepatic function abnormal [Recovered/Resolved]

NARRATIVE: CASE EVENT DATE: 20160826
